FAERS Safety Report 23247041 (Version 1)
Quarter: 2023Q4

REPORT INFORMATION
  Report Type: Spontaneous
  Country: US (occurrence: US)
  Receive Date: 20231130
  Receipt Date: 20231130
  Transmission Date: 20240110
  Serious: No
  Sender: FDA-Public Use
  Company Number: US-NOVOPROD-1020060

PATIENT
  Sex: Female

DRUGS (1)
  1. TRESIBA [Suspect]
     Active Substance: INSULIN DEGLUDEC
     Indication: Type 2 diabetes mellitus
     Dosage: 110 IU, QD
     Route: 058
     Dates: start: 2012

REACTIONS (1)
  - Living in residential institution [Recovered/Resolved]

NARRATIVE: CASE EVENT DATE: 20220801
